FAERS Safety Report 4932295-X (Version None)
Quarter: 2006Q1

REPORT INFORMATION
  Report Type: 
  Country: None (occurrence: None)
  Receive Date: 20060303
  Receipt Date: 20060217
  Transmission Date: 20060701
  Serious: Yes (Other)
  Sender: FDA-Public Use
  Company Number: JP-BOEHRINGER INGELHEIM PHARMACEUTICALS, INC.-2006-BP-02083NB

PATIENT
  Age: 60 Year
  Sex: Male

DRUGS (2)
  1. MICARDIS [Suspect]
     Route: 048
     Dates: start: 20051227, end: 20060210
  2. ADALAT [Concomitant]
     Route: 048

REACTIONS (1)
  - JAUNDICE [None]
